FAERS Safety Report 7056545-1 (Version None)
Quarter: 2010Q4

REPORT INFORMATION
  Report Type: 
  Country: None (occurrence: None)
  Receive Date: 20101018
  Receipt Date: 20101004
  Transmission Date: 20110411
  Serious: Yes (Death)
  Sender: FDA-Public Use
  Company Number: 2010P1001822

PATIENT
  Age: 24 Year
  Sex: Female

DRUGS (4)
  1. PREDNISONE [Suspect]
     Indication: JUVENILE ARTHRITIS
  2. ESTROGEN (ORAL CONTRACEPTION) (NO PREF. NAME) [Suspect]
     Indication: CONTRACEPTION
  3. CON MEDS [Concomitant]
  4. PREV MEDS [Concomitant]

REACTIONS (4)
  - CARDIAC ARREST [None]
  - CORONARY ARTERY EMBOLISM [None]
  - MYOCARDIAL INFARCTION [None]
  - RETCHING [None]
